FAERS Safety Report 8881026 (Version 2)
Quarter: 2012Q4

REPORT INFORMATION
  Report Type: 
  Country: GB (occurrence: GB)
  Receive Date: 20121101
  Receipt Date: 20121116
  Transmission Date: 20130627
  Serious: Yes (Hospitalization)
  Sender: FDA-Public Use
  Company Number: GB-WATSON-2012-18230

PATIENT
  Age: 62 Year
  Sex: Male

DRUGS (2)
  1. FENTANYL CITRATE [Suspect]
     Indication: SEDATION
     Dosage: 100 micro gram,UNK
     Route: 042
     Dates: start: 20120925, end: 20120925
  2. MIDAZOLAM [Concomitant]
     Indication: SEDATION
     Dosage: 5mg, UNK
     Route: 042
     Dates: start: 20120925, end: 20120925

REACTIONS (1)
  - Grand mal convulsion [Recovered/Resolved]
